FAERS Safety Report 20702185 (Version 1)
Quarter: 2022Q2

REPORT INFORMATION
  Report Type: Spontaneous
  Country: US (occurrence: US)
  Receive Date: 20220412
  Receipt Date: 20220412
  Transmission Date: 20220721
  Serious: Yes (Other)
  Sender: FDA-Public Use
  Company Number: US-TEVA-2022-US-2026268

PATIENT
  Age: 58 Year
  Sex: Male

DRUGS (1)
  1. MELPHALAN [Suspect]
     Active Substance: MELPHALAN
     Indication: Plasma cell leukaemia
     Route: 065

REACTIONS (1)
  - Mucosal inflammation [Recovered/Resolved]
